FAERS Safety Report 17700402 (Version 5)
Quarter: 2024Q3

REPORT INFORMATION
  Report Type: Spontaneous
  Country: US (occurrence: US)
  Receive Date: 20200423
  Receipt Date: 20240902
  Transmission Date: 20241017
  Serious: Yes (Other)
  Sender: PFIZER
  Company Number: US-PFIZER INC-2020165441

PATIENT
  Age: 80 Year
  Sex: Female

DRUGS (3)
  1. IBRANCE [Suspect]
     Active Substance: PALBOCICLIB
     Indication: Breast cancer female
     Dosage: UNK
     Dates: start: 2020
  2. IBRANCE [Suspect]
     Active Substance: PALBOCICLIB
     Indication: Breast cancer stage IV
     Dosage: 125 MG, CYCLIC (DAILY ON DAYS 1-21)
  3. LETROZOLE [Concomitant]
     Active Substance: LETROZOLE
     Indication: Breast cancer stage IV
     Dosage: UNK

REACTIONS (9)
  - Suicidal ideation [Unknown]
  - Neoplasm progression [Unknown]
  - Chest pain [Unknown]
  - Mouth ulceration [Recovered/Resolved]
  - Diarrhoea [Recovered/Resolved]
  - Dyspnoea [Unknown]
  - Asthenia [Unknown]
  - Product dose omission issue [Unknown]
  - Intentional dose omission [Unknown]

NARRATIVE: CASE EVENT DATE: 20200101
